FAERS Safety Report 4972878-4 (Version None)
Quarter: 2006Q2

REPORT INFORMATION
  Report Type: 
  Country: None (occurrence: None)
  Receive Date: 20060410
  Receipt Date: 20060320
  Transmission Date: 20061013
  Serious: Yes (Other)
  Sender: FDA-Public Use
  Company Number: US200603005430

PATIENT
  Age: 26 Year
  Sex: Male
  Weight: 110.2 kg

DRUGS (16)
  1. ZYPREXA [Suspect]
     Indication: SCHIZOPHRENIA
     Dosage: 7.5 MG, DAILY, (1/D)
     Dates: start: 19980316, end: 19981218
  2. ZYPREXA [Suspect]
     Indication: SCHIZOPHRENIA
     Dosage: 7.5 MG, DAILY, (1/D)
     Dates: start: 19981218, end: 19991101
  3. ZYPREXA [Suspect]
     Indication: SCHIZOPHRENIA
     Dosage: 7.5 MG, DAILY, (1/D)
     Dates: start: 20040701, end: 20041201
  4. TEGRETOL [Concomitant]
  5. DEPAKOTE [Concomitant]
  6. LORAZEPAM [Concomitant]
  7. RISPERIDONE [Concomitant]
  8. SEROQUEL   /UNK/(QUETIAPINE FUMARATE) [Concomitant]
  9. COGENTIN    /UNK/(BENZATROPINE MESILATE) [Concomitant]
  10. CLOZARIL [Concomitant]
  11. GLUCOPHAGE [Concomitant]
  12. LIPITOR [Concomitant]
  13. ABILIFY [Concomitant]
  14. ASA TABS (ACETYLSALICYLIC ACID) [Concomitant]
  15. IBUPROFEN [Concomitant]
  16. LISINOPRIL [Concomitant]

REACTIONS (7)
  - DIABETES MELLITUS INADEQUATE CONTROL [None]
  - DIABETES MELLITUS NON-INSULIN-DEPENDENT [None]
  - EPISTAXIS [None]
  - GINGIVAL BLEEDING [None]
  - HAEMATOSPERMIA [None]
  - PRESCRIBED OVERDOSE [None]
  - WEIGHT INCREASED [None]
